FAERS Safety Report 14404315 (Version 2)
Quarter: 2018Q2

REPORT INFORMATION
  Report Type: Report from Study
  Country: None (occurrence: RO)
  Receive Date: 20180117
  Receipt Date: 20180601
  Transmission Date: 20180711
  Serious: Yes (Hospitalization)
  Sender: FDA-Public Use
  Company Number: RO-ABBVIE-18P-135-2218771-00

PATIENT
  Age: 70 Year
  Sex: Male
  Weight: 66 kg

DRUGS (16)
  1. TARKA [Concomitant]
     Active Substance: TRANDOLAPRIL\VERAPAMIL HYDROCHLORIDE
     Indication: HYPERTENSION
     Dosage: 180/2MG
     Route: 048
     Dates: start: 2014
  2. DIUREX [Concomitant]
     Active Substance: AMILORIDE HYDROCHLORIDE\HYDROCHLOROTHIAZIDE
     Indication: HYPERTENSION
     Dosage: 20/50MG
     Route: 048
     Dates: start: 2013
  3. DUODOPA [Suspect]
     Active Substance: CARBIDOPA\LEVODOPA
     Route: 050
     Dates: start: 20170530
  4. INSUMAN BASAL [Concomitant]
     Active Substance: INSULIN HUMAN
     Indication: DIABETES MELLITUS
     Route: 058
     Dates: start: 2007
  5. STALEVO [Concomitant]
     Active Substance: CARBIDOPA\ENTACAPONE\LEVODOPA
     Indication: PARKINSON^S DISEASE
     Dosage: 150/37.5/200MG 5X DAILY
     Route: 048
     Dates: start: 2015, end: 20170522
  6. NEUPRO [Concomitant]
     Active Substance: ROTIGOTINE
     Indication: PARKINSON^S DISEASE
     Route: 062
     Dates: start: 2015
  7. DUODOPA [Suspect]
     Active Substance: CARBIDOPA\LEVODOPA
     Indication: PARKINSON^S DISEASE
     Dosage: MD: 10.5, CD 5.7, ED 3, ND 16
     Route: 050
     Dates: start: 20170524, end: 20170529
  8. MADOPAR HBS [Concomitant]
     Active Substance: BENSERAZIDE HYDROCHLORIDE\LEVODOPA
     Indication: PARKINSON^S DISEASE
     Dosage: 100/25MG
     Route: 048
     Dates: start: 20170606
  9. LEPONEX [Concomitant]
     Active Substance: CLOZAPINE
     Indication: PARKINSON^S DISEASE
     Route: 048
     Dates: start: 2015
  10. FUCIDIN [Concomitant]
     Active Substance: FUSIDIC ACID
     Indication: DERMATITIS
     Dosage: 2 LOCAL APPLICATION
     Route: 003
     Dates: start: 20170830, end: 20170913
  11. NEBILET [Concomitant]
     Active Substance: NEBIVOLOL
     Indication: HYPERTENSION
     Route: 048
     Dates: start: 2010
  12. NEXIUM [Concomitant]
     Active Substance: ESOMEPRAZOLE MAGNESIUM
     Indication: GASTRITIS PROPHYLAXIS
     Route: 048
     Dates: start: 20170606
  13. LEPONEX [Concomitant]
     Active Substance: CLOZAPINE
     Indication: SLEEP DISORDER
  14. BEROTEC N [Concomitant]
     Indication: ASTHMA
     Dosage: 100 UG
     Route: 055
     Dates: start: 201705
  15. SIOFOR [Concomitant]
     Active Substance: METFORMIN HYDROCHLORIDE
     Indication: DIABETES MELLITUS
     Route: 048
     Dates: start: 200702
  16. SYMBICORT [Concomitant]
     Active Substance: BUDESONIDE\FORMOTEROL FUMARATE DIHYDRATE
     Indication: ASTHMA
     Dosage: 320/9 UG
     Route: 055
     Dates: start: 2014

REACTIONS (1)
  - Ischaemic stroke [Recovering/Resolving]

NARRATIVE: CASE EVENT DATE: 20170818
